FAERS Safety Report 5033097-9 (Version None)
Quarter: 2006Q2

REPORT INFORMATION
  Report Type: 
  Country: None (occurrence: None)
  Receive Date: 20060620
  Receipt Date: 20060601
  Transmission Date: 20061013
  Serious: Yes (Hospitalization, Other)
  Sender: FDA-Public Use
  Company Number: US200606000694

PATIENT
  Sex: Female

DRUGS (2)
  1. FORTEO [Suspect]
     Dates: end: 20060101
  2. FORTEO [Concomitant]

REACTIONS (4)
  - ACCIDENT [None]
  - BREAST CELLULITIS [None]
  - BREAST INJURY [None]
  - BREAST NECROSIS [None]
